FAERS Safety Report 10449051 (Version 1)
Quarter: 2014Q3

REPORT INFORMATION
  Report Type: Spontaneous
  Country: US (occurrence: None)
  Receive Date: 20140911
  Receipt Date: 20140911
  Transmission Date: 20150326
  Serious: Yes (Death)
  Sender: FDA-Public Use
  Company Number: None

PATIENT
  Age: 84 Year
  Sex: Male
  Weight: 58.4 kg

DRUGS (1)
  1. ETOPOSIDE. [Suspect]
     Active Substance: ETOPOSIDE
     Indication: SMALL CELL LUNG CANCER
     Route: 048
     Dates: start: 20140703, end: 20140710

REACTIONS (4)
  - General physical health deterioration [None]
  - Neutropenia [None]
  - Leukopenia [None]
  - Failure to thrive [None]

NARRATIVE: CASE EVENT DATE: 20140710
